FAERS Safety Report 9847751 (Version 4)
Quarter: 2014Q1

REPORT INFORMATION
  Report Type: Spontaneous
  Country: US (occurrence: US)
  Receive Date: 20140128
  Receipt Date: 20140313
  Transmission Date: 20141002
  Serious: No
  Sender: FDA-Public Use
  Company Number: US-BIOGENIDEC-2013BI114845

PATIENT
  Age: 40 Year
  Sex: Female

DRUGS (10)
  1. TECFIDERA [Suspect]
     Indication: MULTIPLE SCLEROSIS
     Route: 048
     Dates: start: 201310, end: 201311
  2. TECFIDERA [Suspect]
     Indication: MULTIPLE SCLEROSIS
     Route: 048
     Dates: start: 20131108, end: 20131115
  3. TECFIDERA [Suspect]
     Indication: MULTIPLE SCLEROSIS
     Route: 048
     Dates: start: 201311, end: 201312
  4. TECFIDERA [Suspect]
     Indication: MULTIPLE SCLEROSIS
     Route: 048
     Dates: start: 20131108
  5. TECFIDERA [Suspect]
     Indication: MULTIPLE SCLEROSIS
     Route: 048
     Dates: start: 20131115
  6. TECFIDERA [Suspect]
     Indication: MULTIPLE SCLEROSIS
     Route: 048
     Dates: end: 20140106
  7. TECFIDERA [Suspect]
     Indication: MULTIPLE SCLEROSIS
  8. IMMODIUM D [Concomitant]
     Indication: DIARRHOEA
  9. AMITRIPTYLINE [Concomitant]
     Indication: MULTIPLE SCLEROSIS RELAPSE
  10. ZIPSOR [Concomitant]
     Indication: MULTIPLE SCLEROSIS RELAPSE

REACTIONS (19)
  - Head discomfort [Recovered/Resolved]
  - Dizziness [Recovered/Resolved]
  - Asthenopia [Recovered/Resolved]
  - Vision blurred [Recovered/Resolved]
  - Weight decreased [Recovered/Resolved]
  - Gastric disorder [Recovered/Resolved]
  - Eyelid function disorder [Recovered/Resolved]
  - Drug ineffective [Recovered/Resolved]
  - Mobility decreased [Recovered/Resolved]
  - Pyrexia [Recovered/Resolved]
  - Oral pain [Recovered/Resolved]
  - Cognitive disorder [Recovered/Resolved]
  - Flushing [Recovered/Resolved]
  - Abdominal pain upper [Recovered/Resolved]
  - Diarrhoea [Recovered/Resolved]
  - Dyspepsia [Recovered/Resolved]
  - Nausea [Recovered/Resolved]
  - Hot flush [Recovered/Resolved]
  - Vomiting [Recovered/Resolved]
